FAERS Safety Report 12276201 (Version 2)
Quarter: 2016Q2

REPORT INFORMATION
  Report Type: Spontaneous
  Country: AU (occurrence: AU)
  Receive Date: 20160418
  Receipt Date: 20160505
  Transmission Date: 20160815
  Serious: Yes (Life-Threatening, Hospitalization, Other)
  Sender: FDA-Public Use
  Company Number: AU-ROCHE-1742673

PATIENT
  Age: 32 Year
  Sex: Female

DRUGS (1)
  1. XOLAIR [Suspect]
     Active Substance: OMALIZUMAB
     Indication: ANAPHYLACTIC REACTION
     Route: 065
     Dates: start: 20160304, end: 20160404

REACTIONS (30)
  - Respiratory arrest [Unknown]
  - Red cell distribution width increased [Recovered/Resolved]
  - Muscle spasms [Unknown]
  - Upper airway obstruction [Unknown]
  - Mean cell haemoglobin decreased [Unknown]
  - Off label use [Unknown]
  - Blood immunoglobulin E increased [Unknown]
  - Sensation of foreign body [Unknown]
  - Base excess decreased [Unknown]
  - Lymphocyte count decreased [Recovered/Resolved]
  - Hyperventilation [Unknown]
  - Blood bicarbonate decreased [Unknown]
  - Haematocrit decreased [Unknown]
  - Haemoglobin decreased [Unknown]
  - Neutrophil count increased [Recovered/Resolved]
  - PO2 increased [Unknown]
  - Asthma [Unknown]
  - Oedema [Unknown]
  - Stridor [Unknown]
  - Oxygen saturation increased [Unknown]
  - PCO2 decreased [Unknown]
  - C-reactive protein increased [Unknown]
  - Obstructive airways disorder [Unknown]
  - Swelling [Unknown]
  - Choking [Unknown]
  - Blood albumin decreased [Unknown]
  - Blood chloride increased [Unknown]
  - Blood urea decreased [Unknown]
  - Anaphylactic reaction [Recovered/Resolved]
  - Monocyte count decreased [Unknown]

NARRATIVE: CASE EVENT DATE: 20160404
